FAERS Safety Report 7570638-1 (Version None)
Quarter: 2011Q2

REPORT INFORMATION
  Report Type: 
  Country: None (occurrence: None)
  Receive Date: 20110622
  Receipt Date: 20110622
  Transmission Date: 20111010
  Serious: Yes (Life-Threatening, Hospitalization)
  Sender: FDA-Public Use
  Company Number: None

PATIENT
  Age: 55 Year
  Sex: Male
  Weight: 62.3 kg

DRUGS (1)
  1. PLAVIX [Suspect]
     Indication: CORONARY ARTERY DISEASE
     Dosage: 75 MG ONE DAILY ORAL
     Route: 048
     Dates: start: 20100113, end: 20101117

REACTIONS (13)
  - HYPOTENSION [None]
  - NEUTROPENIA [None]
  - SINUS TACHYCARDIA [None]
  - LEUKOPENIA [None]
  - ORAL CANDIDIASIS [None]
  - MOUTH ULCERATION [None]
  - PYREXIA [None]
  - THROMBOCYTOPENIA [None]
  - ANAEMIA [None]
  - PNEUMONIA [None]
  - OROPHARYNGEAL PAIN [None]
  - WEIGHT DECREASED [None]
  - FATIGUE [None]
